FAERS Safety Report 10025721 (Version 1)
Quarter: 2014Q1

REPORT INFORMATION
  Report Type: Spontaneous
  Country: US (occurrence: US)
  Receive Date: 20140320
  Receipt Date: 20140320
  Transmission Date: 20141002
  Serious: Yes (Other)
  Sender: FDA-Public Use
  Company Number: US-ACTAVIS-2014-05082

PATIENT
  Age: 14 Year
  Sex: Male

DRUGS (7)
  1. TACROLIMUS (WATSON LABORATORIES) [Suspect]
     Indication: IMMUNOSUPPRESSANT DRUG THERAPY
     Dosage: UNK
     Route: 065
  2. KETOCONAZOLE [Interacting]
     Indication: DRUG THERAPY ENHANCEMENT
     Dosage: UNK
     Route: 065
  3. KETOCONAZOLE [Interacting]
     Indication: OFF LABEL USE
  4. RIFAMPIN [Interacting]
     Indication: LATENT TUBERCULOSIS
     Dosage: 10 MG/KG, UNK
     Route: 065
  5. MYCOPHENOLATE MOFETIL [Concomitant]
     Indication: IMMUNOSUPPRESSANT DRUG THERAPY
     Dosage: UNK
     Route: 065
  6. METHYLPREDNISOLONE [Concomitant]
     Indication: IMMUNOSUPPRESSANT DRUG THERAPY
     Dosage: UNK
     Route: 065
  7. VANCOMYCIN [Concomitant]
     Indication: PRODUCT USED FOR UNKNOWN INDICATION
     Dosage: UNK
     Route: 065

REACTIONS (3)
  - Electrocardiogram QT prolonged [Unknown]
  - Drug interaction [Unknown]
  - Off label use [Unknown]
